FAERS Safety Report 18226821 (Version 1)
Quarter: 2020Q3

REPORT INFORMATION
  Report Type: Spontaneous
  Country: CO (occurrence: CO)
  Receive Date: 20200903
  Receipt Date: 20200903
  Transmission Date: 20201103
  Serious: Yes (Life-Threatening, Hospitalization)
  Sender: FDA-Public Use
  Company Number: CO-STRIDES ARCOLAB LIMITED-2020SP010326

PATIENT
  Age: 18 Year
  Sex: Female

DRUGS (1)
  1. AMLODIPINE [Suspect]
     Active Substance: AMLODIPINE BESYLATE
     Indication: PRODUCT USED FOR UNKNOWN INDICATION
     Dosage: 60 TABLETS OF 10 MILLIGRAM
     Route: 048

REACTIONS (6)
  - Intentional overdose [Unknown]
  - Blood pressure decreased [Unknown]
  - Hyperlactacidaemia [Unknown]
  - Intentional self-injury [Unknown]
  - Renal impairment [Unknown]
  - Hypoperfusion [Unknown]
